FAERS Safety Report 24074232 (Version 1)
Quarter: 2024Q3

REPORT INFORMATION
  Report Type: Report from Study
  Country: CA (occurrence: CA)
  Receive Date: 20240710
  Receipt Date: 20240710
  Transmission Date: 20241016
  Serious: Yes (Other)
  Sender: BIOCON
  Company Number: CA-BIOCON BIOLOGICS LIMITED-BBL2024004925

PATIENT

DRUGS (1)
  1. HULIO [Suspect]
     Active Substance: ADALIMUMAB-FKJP
     Indication: Ankylosing spondylitis
     Dosage: 40 MILLIGRAM, Q2W, 1 EVERY 2 WEEKS (SOLUTION)
     Route: 058

REACTIONS (5)
  - Spinal pain [Unknown]
  - Laboratory test abnormal [Unknown]
  - Colitis [Unknown]
  - Crohn^s disease [Unknown]
  - Infection [Unknown]
